FAERS Safety Report 8399101-5 (Version None)
Quarter: 2012Q2

REPORT INFORMATION
  Report Type: 
  Country: None (occurrence: None)
  Receive Date: 20120531
  Receipt Date: 20120504
  Transmission Date: 20120825
  Serious: No
  Sender: FDA-Public Use
  Company Number: US-BAYER-2012-048589

PATIENT

DRUGS (6)
  1. BISMUTH SUBSALICYLATE [Concomitant]
     Indication: ABDOMINAL PAIN UPPER
  2. NEXIUM [Concomitant]
     Indication: ABDOMINAL PAIN UPPER
  3. ALEVE (CAPLET) [Suspect]
     Indication: MUSCLE SPASMS
     Dosage: 4 DF, UNK
  4. SKELAXIN [Concomitant]
     Indication: MUSCLE SPASMS
  5. MOTRIN [Concomitant]
     Indication: MUSCLE SPASMS
     Dosage: 800 MG, UNK
  6. SODIUM BICARBONATE [Suspect]
     Indication: ABDOMINAL PAIN UPPER
     Route: 048

REACTIONS (1)
  - ABDOMINAL PAIN UPPER [None]
